FAERS Safety Report 19217182 (Version 1)
Quarter: 2021Q2

REPORT INFORMATION
  Report Type: Report from Study
  Country: US (occurrence: US)
  Receive Date: 20210505
  Receipt Date: 20210505
  Transmission Date: 20210717
  Serious: Yes (Other)
  Sender: FDA-Public Use
  Company Number: US-JAZZ-2021-US-007828

PATIENT
  Sex: Male

DRUGS (1)
  1. XYWAV [Suspect]
     Active Substance: CALCIUM OXYBATE\MAGNESIUM OXYBATE\POTASSIUM OXYBATE\SODIUM OXYBATE
     Indication: INSOMNIA
     Dosage: 4.5 GRAM, BID
     Route: 048
     Dates: start: 202101, end: 2021

REACTIONS (2)
  - Shoulder operation [Unknown]
  - Off label use [Unknown]

NARRATIVE: CASE EVENT DATE: 2021
